FAERS Safety Report 21272883 (Version 1)
Quarter: 2022Q3

REPORT INFORMATION
  Report Type: Spontaneous
  Country: US (occurrence: None)
  Receive Date: 20220831
  Receipt Date: 20220831
  Transmission Date: 20221026
  Serious: No
  Sender: FDA-Public Use
  Company Number: 2022A291877

PATIENT
  Sex: Male
  Weight: 72.6 kg

DRUGS (1)
  1. XIGDUO XR [Suspect]
     Active Substance: DAPAGLIFLOZIN PROPANEDIOL\METFORMIN HYDROCHLORIDE
     Indication: Diabetes mellitus
     Dosage: XIGDUO 2.5 MG TWO TABLETS ONCE A DAY FOR DIABETES
     Route: 048

REACTIONS (2)
  - Anal infection [Not Recovered/Not Resolved]
  - Sitting disability [Not Recovered/Not Resolved]
